FAERS Safety Report 11615981 (Version 1)
Quarter: 2015Q4

REPORT INFORMATION
  Report Type: Spontaneous
  Country: US (occurrence: None)
  Receive Date: 20151008
  Receipt Date: 20151008
  Transmission Date: 20160304
  Serious: No
  Sender: FDA-Public Use
  Company Number: None

PATIENT
  Age: 81 Year
  Sex: Male

DRUGS (1)
  1. EDEX [Suspect]
     Active Substance: ALPROSTADIL
     Indication: PROSTATIC OPERATION
     Dosage: 20-40 MCG
     Dates: start: 20120315

REACTIONS (1)
  - Penile size reduced [None]

NARRATIVE: CASE EVENT DATE: 20120315
